FAERS Safety Report 4402697-9 (Version None)
Quarter: 2004Q3

REPORT INFORMATION
  Report Type: 
  Country: None (occurrence: None)
  Receive Date: 20040721
  Receipt Date: 20040721
  Transmission Date: 20050211
  Serious: Yes (Life-Threatening, Hospitalization)
  Sender: FDA-Public Use
  Company Number: None

PATIENT
  Age: 85 Year
  Sex: Male
  Weight: 85 kg

DRUGS (3)
  1. CRESTOR [Suspect]
     Indication: HYPERCHOLESTEROLAEMIA
     Dosage: 20 MG DAILY ORAL
     Route: 048
     Dates: start: 20040706, end: 20040718
  2. COUMADIN [Suspect]
     Indication: ANTICOAGULANT THERAPY
     Dosage: 2.5 MG DAILY ORAL
     Route: 048
     Dates: start: 20020502, end: 20040718
  3. COUMADIN [Suspect]
     Indication: ARRHYTHMIA
     Dosage: 2.5 MG DAILY ORAL
     Route: 048
     Dates: start: 20020502, end: 20040718

REACTIONS (5)
  - CHROMATURIA [None]
  - CONTUSION [None]
  - MUSCLE CRAMP [None]
  - PYREXIA [None]
  - SWOLLEN TONGUE [None]
